FAERS Safety Report 20981624 (Version 3)
Quarter: 2022Q3

REPORT INFORMATION
  Report Type: Spontaneous
  Country: AR (occurrence: AR)
  Receive Date: 20220620
  Receipt Date: 20220729
  Transmission Date: 20221027
  Serious: No
  Sender: FDA-Public Use
  Company Number: AR-PFIZER INC-202200788107

PATIENT
  Age: 9 Year
  Sex: Female

DRUGS (1)
  1. GENOTROPIN [Suspect]
     Active Substance: SOMATROPIN
     Indication: Short stature
     Dosage: 0.6 TO 1MG, 7 TIMES PER WEEK
     Dates: start: 20190116, end: 20220301

REACTIONS (3)
  - Device mechanical issue [Unknown]
  - Expired device used [Unknown]
  - Injection site pain [Not Recovered/Not Resolved]
